FAERS Safety Report 4609895-X (Version None)
Quarter: 2005Q1

REPORT INFORMATION
  Report Type: 
  Country: None (occurrence: None)
  Receive Date: 20050314
  Receipt Date: 20050314
  Transmission Date: 20050727
  Serious: Yes (Hospitalization)
  Sender: FDA-Public Use
  Company Number: None

PATIENT
  Age: 82 Year
  Sex: Male

DRUGS (14)
  1. AMIODARONE HCL [Suspect]
     Indication: ARRHYTHMIA
     Dosage: 100 MG QD
     Dates: start: 20040301
  2. TIMOLOL (OPHTH) [Suspect]
     Indication: GLAUCOMA
     Dosage: 1 DROP BID
     Route: 047
     Dates: start: 20010701
  3. ANUSOL HC [Concomitant]
  4. DIAZEPAM [Concomitant]
  5. DIPHENHYRAMINE [Concomitant]
  6. CREON [Concomitant]
  7. HYDROCHLOROTHIAZIDE [Concomitant]
  8. INSULIN [Concomitant]
  9. LORTAB [Concomitant]
  10. ZOCOR [Concomitant]
  11. ETODOLAC [Concomitant]
  12. OMEPRAZOLE [Concomitant]
  13. IRBESARTAN [Concomitant]
  14. TERAZOSIN [Concomitant]

REACTIONS (1)
  - BRADYCARDIA [None]
